FAERS Safety Report 17570047 (Version 1)
Quarter: 2020Q1

REPORT INFORMATION
  Report Type: Report from Study
  Country: US (occurrence: US)
  Receive Date: 20200323
  Receipt Date: 20200323
  Transmission Date: 20200409
  Serious: Yes (Hospitalization)
  Sender: FDA-Public Use
  Company Number: US-AUROBINDO-AUR-APL-2020-013850

PATIENT
  Age: 38 Year
  Sex: Female

DRUGS (1)
  1. FUROSEMIDE. [Suspect]
     Active Substance: FUROSEMIDE
     Indication: MALIGNANT ASCITES
     Dosage: UNK
     Route: 065

REACTIONS (7)
  - Hypovolaemia [Unknown]
  - Dizziness [Unknown]
  - Mucosal dryness [Unknown]
  - Nausea [Unknown]
  - Hyponatraemia [Unknown]
  - Lethargy [Unknown]
  - Tachycardia [Unknown]
